FAERS Safety Report 7326328-3 (Version None)
Quarter: 2011Q1

REPORT INFORMATION
  Report Type: 
  Country: None (occurrence: None)
  Receive Date: 20110302
  Receipt Date: 20110223
  Transmission Date: 20110831
  Serious: Yes (Death)
  Sender: FDA-Public Use
  Company Number: B0697370A

PATIENT
  Sex: Female

DRUGS (8)
  1. EPINEPHRINE [Concomitant]
     Route: 065
  2. VEEN F [Concomitant]
     Route: 042
  3. MUCOSTA [Concomitant]
     Route: 048
  4. LIDOCAINE HYDROCHLORIDE [Concomitant]
     Route: 065
  5. RELENZA [Suspect]
     Indication: INFLUENZA
     Route: 055
     Dates: start: 20110126
  6. MEYLON [Concomitant]
     Route: 042
  7. CALONAL [Concomitant]
     Dosage: 600MG PER DAY
     Route: 048
     Dates: start: 20110126
  8. MEDICON [Concomitant]
     Indication: COUGH
     Dosage: 90MG PER DAY
     Route: 048
     Dates: start: 20110126

REACTIONS (4)
  - VENTRICULAR TACHYCARDIA [None]
  - BLOOD PRESSURE IMMEASURABLE [None]
  - DEPRESSED LEVEL OF CONSCIOUSNESS [None]
  - HYPOTHERMIA [None]
